FAERS Safety Report 11626465 (Version 1)
Quarter: 2015Q4

REPORT INFORMATION
  Report Type: Spontaneous
  Country: US (occurrence: US)
  Receive Date: 20151013
  Receipt Date: 20151013
  Transmission Date: 20160304
  Serious: No
  Sender: FDA-Public Use
  Company Number: US-ROCHE-1489590

PATIENT
  Age: 56 Year
  Sex: Male

DRUGS (12)
  1. PREDNISONE. [Concomitant]
     Active Substance: PREDNISONE
     Route: 065
  2. CIPROFLOXACIN. [Concomitant]
     Active Substance: CIPROFLOXACIN
     Route: 065
  3. GENERLAC [Concomitant]
     Active Substance: LACTULOSE
  4. DOXEPIN [Concomitant]
     Active Substance: DOXEPIN
     Route: 065
  5. PERCOCET [Concomitant]
     Active Substance: ACETAMINOPHEN\OXYCODONE HYDROCHLORIDE
  6. METRONIDAZOLE. [Concomitant]
     Active Substance: METRONIDAZOLE
     Route: 065
  7. MOTRIN IB [Concomitant]
     Active Substance: IBUPROFEN
     Route: 065
  8. QVAR [Concomitant]
     Active Substance: BECLOMETHASONE DIPROPIONATE
  9. VENTOLIN HFA [Concomitant]
     Active Substance: ALBUTEROL SULFATE
  10. CIPROFLOXACIN. [Concomitant]
     Active Substance: CIPROFLOXACIN
     Route: 065
  11. ZELBORAF [Suspect]
     Active Substance: VEMURAFENIB
     Indication: NEOPLASM MALIGNANT
     Route: 048
     Dates: start: 20140719
  12. OXYCODONE/ACETAMINOPHEN [Concomitant]
     Active Substance: ACETAMINOPHEN\OXYCODONE HYDROCHLORIDE

REACTIONS (2)
  - Arthralgia [Not Recovered/Not Resolved]
  - Cough [Not Recovered/Not Resolved]

NARRATIVE: CASE EVENT DATE: 201408
